FAERS Safety Report 11347846 (Version 1)
Quarter: 2015Q3

REPORT INFORMATION
  Report Type: Spontaneous
  Country: US (occurrence: US)
  Receive Date: 20150803
  Receipt Date: 20150803
  Transmission Date: 20151125
  Serious: Yes (Other)
  Sender: FDA-Public Use
  Company Number: US-ELI_LILLY_AND_COMPANY-US201111004179

PATIENT
  Sex: Male

DRUGS (5)
  1. HALDOL [Concomitant]
     Active Substance: HALOPERIDOL
  2. SEROQUEL [Concomitant]
     Active Substance: QUETIAPINE FUMARATE
  3. ABILIFY [Concomitant]
     Active Substance: ARIPIPRAZOLE
  4. DEPAKOTE [Concomitant]
     Active Substance: DIVALPROEX SODIUM
  5. ZYPREXA [Suspect]
     Active Substance: OLANZAPINE

REACTIONS (2)
  - Hypersomnia [Unknown]
  - Weight increased [Unknown]
